FAERS Safety Report 16204774 (Version 5)
Quarter: 2021Q4

REPORT INFORMATION
  Report Type: Spontaneous
  Country: DE (occurrence: DE)
  Receive Date: 20190416
  Receipt Date: 20211022
  Transmission Date: 20220303
  Serious: Yes (Life-Threatening, Hospitalization, Other)
  Sender: FDA-Public Use
  Company Number: PHHY2019DE086449

PATIENT
  Age: 22 Year
  Sex: Female

DRUGS (6)
  1. CEFTRIAXONE [Suspect]
     Active Substance: CEFTRIAXONE
     Indication: Antibiotic therapy
     Dosage: 750 MG, UNKNOWN
     Route: 065
  2. ECULIZUMAB [Suspect]
     Active Substance: ECULIZUMAB
     Indication: Paroxysmal nocturnal haemoglobinuria
     Dosage: UNK
     Route: 065
  3. MENINGOCOCCAL POLYSACCHARIDE VACCINE, GROUPS A, C, Y,W135 COMBINED [Suspect]
     Active Substance: MENINGOCOCCAL POLYSACCHARIDE VACCINE, GROUPS A, C, Y,W135 COMBINED
     Indication: Prophylaxis
     Dosage: UNK (POTENTIAL MENVEO)
     Route: 065
  4. MENINGOCOCCAL POLYSACCHARIDE VACCINE, GROUPS A, C, Y,W135 COMBINED [Suspect]
     Active Substance: MENINGOCOCCAL POLYSACCHARIDE VACCINE, GROUPS A, C, Y,W135 COMBINED
     Indication: Immunisation
  5. MENINGOCOCCAL GROUP B VACCINE [Suspect]
     Active Substance: MENINGOCOCCAL GROUP B VACCINE
     Indication: Immunisation
     Dosage: UNK
     Route: 065
  6. MENINGOCOCCAL GROUP B VACCINE [Suspect]
     Active Substance: MENINGOCOCCAL GROUP B VACCINE
     Indication: Prophylaxis

REACTIONS (16)
  - Abdominal pain [Unknown]
  - Asthenia [Recovered/Resolved]
  - Hypotension [Unknown]
  - Tachycardia [Unknown]
  - Pain in extremity [Recovered/Resolved]
  - Coombs negative haemolytic anaemia [Unknown]
  - Neck pain [Unknown]
  - Meningococcal sepsis [Unknown]
  - Disseminated intravascular coagulation [Unknown]
  - Inflammation [Recovered/Resolved]
  - Pancytopenia [Unknown]
  - Pyrexia [Unknown]
  - Headache [Recovered/Resolved]
  - Vomiting [Recovered/Resolved]
  - Dizziness [Unknown]
  - Drug ineffective [Unknown]
